FAERS Safety Report 8601075-6 (Version None)
Quarter: 2012Q3

REPORT INFORMATION
  Report Type: 
  Country: None (occurrence: None)
  Receive Date: 20120805
  Receipt Date: 20120724
  Transmission Date: 20120928
  Serious: Yes (Other)
  Sender: FDA-Public Use
  Company Number: AUR-APL-2012-03252

PATIENT
  Age: 50 Year
  Sex: Female
  Weight: 79.36 kg

DRUGS (2)
  1. VENLAFAXINE HCL [Suspect]
     Indication: DEPRESSION
     Dosage: DAILY (150 MG), UNKNOWN
  2. EFFEXOR XR [Suspect]
     Indication: DEPRESSION
     Dosage: DAILY (150 MG), ORAL
     Route: 048
     Dates: start: 20120101, end: 20120101

REACTIONS (6)
  - LARYNGITIS [None]
  - MALAISE [None]
  - TREATMENT NONCOMPLIANCE [None]
  - VOMITING [None]
  - CALCINOSIS [None]
  - THYROID DISORDER [None]
